FAERS Safety Report 7274676-8 (Version None)
Quarter: 2011Q1

REPORT INFORMATION
  Report Type: 
  Country: None (occurrence: None)
  Receive Date: 20110204
  Receipt Date: 20110131
  Transmission Date: 20110831
  Serious: Yes (Death, Hospitalization)
  Sender: FDA-Public Use
  Company Number: US-BRISTOL-MYERS SQUIBB COMPANY-13280250

PATIENT
  Age: 67 Year
  Sex: Female

DRUGS (9)
  1. LASIX [Concomitant]
     Dates: start: 20060123
  2. ORTHO-NOVUM [Concomitant]
     Dates: start: 20060101
  3. DASATINIB [Suspect]
     Indication: CHRONIC MYELOID LEUKAEMIA
     Dosage: INTERRUPTED ON 2-FEB-06
     Route: 048
     Dates: start: 20060131, end: 20060202
  4. RESTORIL [Concomitant]
     Dates: start: 20060123
  5. BENADRYL [Concomitant]
     Dates: start: 20060130, end: 20060130
  6. FOSAMAX [Concomitant]
     Dates: start: 20060101
  7. ZESTRIL [Concomitant]
     Dates: start: 20060101
  8. K-DUR [Concomitant]
     Dates: start: 20060123
  9. NEXIUM [Concomitant]
     Dates: start: 20060123

REACTIONS (14)
  - MITRAL VALVE INCOMPETENCE [None]
  - SEPSIS [None]
  - HAEMATOMA [None]
  - EFFUSION [None]
  - TRICUSPID VALVE INCOMPETENCE [None]
  - RENAL FAILURE [None]
  - CEREBRAL ISCHAEMIA [None]
  - THROMBOCYTOPENIA [None]
  - ATELECTASIS [None]
  - PANCYTOPENIA [None]
  - CEREBROVASCULAR ACCIDENT [None]
  - ECCHYMOSIS [None]
  - CARDIAC FAILURE CONGESTIVE [None]
  - ATRIAL FIBRILLATION [None]
